FAERS Safety Report 8263626-3 (Version None)
Quarter: 2012Q2

REPORT INFORMATION
  Report Type: 
  Country: None (occurrence: None)
  Receive Date: 20120405
  Receipt Date: 20120330
  Transmission Date: 20120825
  Serious: Yes (Hospitalization, Other)
  Sender: FDA-Public Use
  Company Number: US-ABBOTT-12P-163-0920926-00

PATIENT
  Sex: Male
  Weight: 102.15 kg

DRUGS (6)
  1. HUMIRA [Suspect]
     Indication: RHEUMATOID ARTHRITIS
     Route: 058
     Dates: start: 20110801
  2. METOPROLOL SUCCINATE [Concomitant]
     Indication: HYPERTENSION
  3. SIMVASTATIN [Concomitant]
     Indication: BLOOD CHOLESTEROL INCREASED
  4. METHOTREXATE [Concomitant]
     Indication: RHEUMATOID ARTHRITIS
     Dosage: FORM STRENGHT: 2.5MG, 1 IN 1 WEEK
  5. TRAMADOL HCL [Concomitant]
     Indication: RHEUMATOID ARTHRITIS
     Dosage: 150MG DAILY (100MG Q AM, 50MG QHS)
  6. LISINOPRIL [Concomitant]
     Indication: HYPERTENSION

REACTIONS (13)
  - CHEST DISCOMFORT [None]
  - FATIGUE [None]
  - FLUSHING [None]
  - HYPERHIDROSIS [None]
  - PALLOR [None]
  - DYSPEPSIA [None]
  - CHEST PAIN [None]
  - MYOCARDIAL INFARCTION [None]
  - PERIPHERAL COLDNESS [None]
  - DISCOMFORT [None]
  - CORONARY ARTERY OCCLUSION [None]
  - COLD SWEAT [None]
  - BURNING SENSATION [None]
